FAERS Safety Report 14009415 (Version 5)
Quarter: 2018Q1

REPORT INFORMATION
  Report Type: Other
  Country: IT (occurrence: IT)
  Receive Date: 20170925
  Receipt Date: 20180105
  Transmission Date: 20180508
  Serious: Yes (Other)
  Sender: FDA-Public Use
  Company Number: IT-CELLTRION INC.-2017IT012687

PATIENT

DRUGS (7)
  1. PENTACOL [Concomitant]
     Active Substance: MESALAMINE
  2. CONGESCOR [Concomitant]
     Active Substance: BISOPROLOL
  3. LAMICTAL [Concomitant]
     Active Substance: LAMOTRIGINE
  4. INFLECTRA [Suspect]
     Active Substance: INFLIXIMAB-DYYB
     Indication: CROHN^S DISEASE
     Dosage: 300 MG, AS NEEDED
     Route: 042
     Dates: start: 20170918, end: 20170918
  5. EFEXOR XL [Concomitant]
     Active Substance: VENLAFAXINE HYDROCHLORIDE
  6. LASIX [Concomitant]
     Active Substance: FUROSEMIDE
  7. EUTIROX [Concomitant]
     Active Substance: LEVOTHYROXINE SODIUM

REACTIONS (2)
  - Dyspnoea [Recovered/Resolved]
  - Sense of oppression [Recovered/Resolved]

NARRATIVE: CASE EVENT DATE: 20170918
